FAERS Safety Report 17138295 (Version 1)
Quarter: 2019Q4

REPORT INFORMATION
  Report Type: Spontaneous
  Country: PL (occurrence: PL)
  Receive Date: 20191211
  Receipt Date: 20191211
  Transmission Date: 20200122
  Serious: Yes (Other)
  Sender: FDA-Public Use
  Company Number: PL-TEVA-2019-PL-1148963

PATIENT
  Sex: Female

DRUGS (1)
  1. PINEXET [Suspect]
     Active Substance: QUETIAPINE
     Route: 065

REACTIONS (6)
  - Somnolence [Unknown]
  - Irritability [Unknown]
  - Musculoskeletal stiffness [Unknown]
  - Mental impairment [Unknown]
  - Headache [Unknown]
  - Dry mouth [Unknown]
